FAERS Safety Report 24583561 (Version 1)
Quarter: 2024Q4

REPORT INFORMATION
  Report Type: Spontaneous
  Country: JO (occurrence: JO)
  Receive Date: 20241106
  Receipt Date: 20241106
  Transmission Date: 20250114
  Serious: Yes (Other)
  Sender: STRIDES
  Company Number: JO-STRIDES ARCOLAB LIMITED-2024SP014122

PATIENT
  Age: 23 Year
  Sex: Female

DRUGS (2)
  1. CABERGOLINE [Suspect]
     Active Substance: CABERGOLINE
     Indication: Hyperprolactinaemia
     Dosage: 0.5 MILLIGRAM/WEEK
     Route: 065
  2. CABERGOLINE [Suspect]
     Active Substance: CABERGOLINE
     Dosage: 0.5 MILLIGRAM/WEEK (RESUMED)
     Route: 065

REACTIONS (2)
  - Rebound effect [Recovered/Resolved]
  - Maternal exposure during pregnancy [Unknown]
